FAERS Safety Report 5805148-2 (Version None)
Quarter: 2008Q3

REPORT INFORMATION
  Report Type: 
  Country: None (occurrence: None)
  Receive Date: 20080709
  Receipt Date: 20080702
  Transmission Date: 20090109
  Serious: Yes (Other)
  Sender: FDA-Public Use
  Company Number: US-GENENTECH-263563

PATIENT
  Sex: Female
  Weight: 107 kg

DRUGS (18)
  1. XOLAIR [Suspect]
     Indication: ASTHMA
     Dosage: 225 MG, Q2W
     Route: 058
     Dates: start: 20080604, end: 20080626
  2. XOLAIR [Suspect]
     Indication: COUGH
  3. XOLAIR [Suspect]
     Indication: RHINITIS ALLERGIC
  4. ZYRTEC [Concomitant]
     Indication: DRUG USE FOR UNKNOWN INDICATION
     Dosage: 10 MG, BID
  5. ZANTAC [Concomitant]
     Indication: DRUG USE FOR UNKNOWN INDICATION
     Dosage: 150 MG, BID
  6. ALBUTEROL SULFATE [Concomitant]
     Indication: DRUG USE FOR UNKNOWN INDICATION
     Dosage: 2 PUFF, PRN
  7. SINGULAIR [Concomitant]
     Indication: DRUG USE FOR UNKNOWN INDICATION
     Dosage: 10 MG, QD
  8. CALCITRIOL [Concomitant]
     Indication: DRUG USE FOR UNKNOWN INDICATION
     Dosage: 0.5 A?G, UNK
  9. ESTRADIOL [Concomitant]
     Indication: DRUG USE FOR UNKNOWN INDICATION
     Dosage: 0.025 MG, UNK
  10. BENICAR [Concomitant]
     Indication: DRUG USE FOR UNKNOWN INDICATION
     Dosage: 20 MG, UNK
  11. SYMBICORT [Concomitant]
     Indication: DRUG USE FOR UNKNOWN INDICATION
     Dosage: 2 PUFF, BID
  12. LEVOTHYROXINE SODIUM [Concomitant]
     Indication: DRUG USE FOR UNKNOWN INDICATION
     Dosage: 150 A?G, UNK
  13. HYDROXYZINE HCL [Concomitant]
     Indication: DRUG USE FOR UNKNOWN INDICATION
     Dosage: 10 MG, QHS
  14. NASACORT [Concomitant]
     Indication: DRUG USE FOR UNKNOWN INDICATION
     Dosage: 1 UNK, BID
  15. ALLEGRA [Concomitant]
     Indication: TONGUE OEDEMA
     Dosage: 180 MG, BID
  16. ALLEGRA [Concomitant]
     Indication: URTICARIA
  17. XYZAL [Concomitant]
     Indication: TONGUE OEDEMA
     Dosage: 5 MG, BID
  18. XYZAL [Concomitant]
     Indication: PHARYNGEAL OEDEMA

REACTIONS (3)
  - ANGIOEDEMA [None]
  - RASH [None]
  - SWOLLEN TONGUE [None]
